FAERS Safety Report 6592666-5 (Version None)
Quarter: 2010Q1

REPORT INFORMATION
  Report Type: 
  Country: None (occurrence: None)
  Receive Date: 20100222
  Receipt Date: 20100211
  Transmission Date: 20100710
  Serious: Yes (Hospitalization)
  Sender: FDA-Public Use
  Company Number: US-BIOGENIDEC-2008BI026448

PATIENT
  Age: 50 Year
  Sex: Female

DRUGS (13)
  1. AVONEX [Suspect]
     Indication: MULTIPLE SCLEROSIS
     Route: 030
     Dates: start: 20070517
  2. WELLBUTRIN [Concomitant]
  3. TEGRETOL [Concomitant]
  4. SURFAK [Concomitant]
  5. ZETIA [Concomitant]
  6. IRON [Concomitant]
  7. MAGNESIUM [Concomitant]
  8. MORPHINE [Concomitant]
  9. PROTONIX [Concomitant]
  10. POTASSIUM [Concomitant]
  11. ZINC [Concomitant]
  12. PERCOCET [Concomitant]
  13. LOVENOX [Concomitant]

REACTIONS (6)
  - CLAVICLE FRACTURE [None]
  - LUMBAR VERTEBRAL FRACTURE [None]
  - RIB FRACTURE [None]
  - ROAD TRAFFIC ACCIDENT [None]
  - SPINAL FRACTURE [None]
  - STERNAL FRACTURE [None]
